FAERS Safety Report 18334704 (Version 1)
Quarter: 2020Q4

REPORT INFORMATION
  Report Type: Spontaneous
  Country: BR (occurrence: BR)
  Receive Date: 20201001
  Receipt Date: 20201001
  Transmission Date: 20210113
  Serious: Yes (Other)
  Sender: FDA-Public Use
  Company Number: BR-PFIZER INC-2020377203

PATIENT
  Age: 57 Year
  Sex: Male

DRUGS (5)
  1. XALATAN [Suspect]
     Active Substance: LATANOPROST
     Indication: GLAUCOMA
     Dosage: 1 DROP, DAILY (A DROP IN EACH EYE EVERY DAY)
     Dates: start: 2005
  2. LOSARTAN [LOSARTAN POTASSIUM] [Concomitant]
     Active Substance: LOSARTAN POTASSIUM
  3. XALATAN [Suspect]
     Active Substance: LATANOPROST
     Dosage: 1 DROP ( ONE DROP IN EACH EYE EVERY THREE DAYS)
  4. LIPITOR [Suspect]
     Active Substance: ATORVASTATIN CALCIUM
     Indication: CAROTID ARTERY OCCLUSION
     Dosage: UNK
     Dates: start: 2002
  5. PROPRANOLOL [Concomitant]
     Active Substance: PROPRANOLOL HYDROCHLORIDE

REACTIONS (4)
  - Haemorrhoids [Unknown]
  - Off label use [Unknown]
  - Product use issue [Unknown]
  - Wound dehiscence [Unknown]

NARRATIVE: CASE EVENT DATE: 2015
